FAERS Safety Report 8777484 (Version 1)
Quarter: 2012Q4

REPORT INFORMATION
  Report Type: 
  Country: FR (occurrence: FR)
  Receive Date: 20120911
  Receipt Date: 20120911
  Transmission Date: 20130627
  Serious: Yes (Other)
  Sender: FDA-Public Use
  Company Number: FR-RANBAXY-2012RR-59904

PATIENT
  Age: 47 Year
  Sex: Male
  Weight: 80 kg

DRUGS (4)
  1. DEXTROPROPOXYPHENE/PARACETAMOL [Suspect]
     Indication: TOOTHACHE
     Dosage: supposed ingested dose  119 mg/kg/day
     Route: 065
  2. DEXTROPROPOXYPHENE/PARACETAMOL [Suspect]
     Indication: TOOTHACHE
     Dosage: UNK
     Route: 065
  3. CODEINE PHOSPHATE / ACETAMINOPHEN [Suspect]
     Indication: TOOTHACHE
     Dosage: UNK
     Route: 065
  4. TRAMADOL HYDROCHLORIDE/ACETAMINOPHEN [Suspect]
     Indication: TOOTHACHE
     Dosage: UNK
     Route: 065

REACTIONS (5)
  - Accidental overdose [Recovered/Resolved]
  - Vomiting [Recovered/Resolved]
  - Nausea [Recovered/Resolved]
  - Pallor [Recovered/Resolved]
  - Hyperhidrosis [Recovered/Resolved]
